FAERS Safety Report 12195134 (Version 2)
Quarter: 2016Q1

REPORT INFORMATION
  Report Type: Spontaneous
  Country: US (occurrence: US)
  Receive Date: 20160321
  Receipt Date: 20160323
  Transmission Date: 20160526
  Serious: Yes (Other)
  Sender: FDA-Public Use
  Company Number: US-TEVA-631742USA

PATIENT
  Age: 54 Year
  Sex: Female
  Weight: 72.5 kg

DRUGS (2)
  1. ESTRADIOL. [Concomitant]
     Active Substance: ESTRADIOL
     Dosage: 1 TABLET TWICE WEEKLY
     Route: 067
     Dates: start: 201511
  2. CABERGOLINE. [Suspect]
     Active Substance: CABERGOLINE
     Indication: HYPERPROLACTINAEMIA
     Dosage: 0.25 MG TWICE WEEKLY
     Route: 048

REACTIONS (5)
  - Headache [Unknown]
  - Suspected counterfeit product [Unknown]
  - Emotional disorder [Unknown]
  - Drug ineffective [Unknown]
  - Therapeutic product ineffective [Unknown]

NARRATIVE: CASE EVENT DATE: 20160115
